APPROVED DRUG PRODUCT: MIDODRINE HYDROCHLORIDE
Active Ingredient: MIDODRINE HYDROCHLORIDE
Strength: 10MG
Dosage Form/Route: TABLET;ORAL
Application: A207169 | Product #003 | TE Code: AB
Applicant: PH HEALTH LTD
Approved: Oct 29, 2018 | RLD: No | RS: No | Type: RX